FAERS Safety Report 19256601 (Version 1)
Quarter: 2021Q2

REPORT INFORMATION
  Report Type: Spontaneous
  Country: US (occurrence: US)
  Receive Date: 20210513
  Receipt Date: 20210513
  Transmission Date: 20210717
  Serious: No
  Sender: FDA-Public Use
  Company Number: US-MYLANLABS-2021M1025305

PATIENT
  Age: 70 Year
  Sex: Female

DRUGS (1)
  1. CLONIDINE TRANSDERMAL SYSTEM [Suspect]
     Active Substance: CLONIDINE
     Indication: PRODUCT USED FOR UNKNOWN INDICATION
     Dosage: UNK
     Route: 062

REACTIONS (6)
  - Application site pruritus [Unknown]
  - Drug ineffective [Unknown]
  - Peripheral swelling [Unknown]
  - Blood pressure increased [Unknown]
  - Application site erythema [Unknown]
  - Product quality issue [Unknown]

NARRATIVE: CASE EVENT DATE: 20210327
